FAERS Safety Report 9734306 (Version 1)
Quarter: 2013Q4

REPORT INFORMATION
  Report Type: Spontaneous
  Country: FR (occurrence: FR)
  Receive Date: 20131206
  Receipt Date: 20131206
  Transmission Date: 20140711
  Serious: Yes (Hospitalization)
  Sender: FDA-Public Use
  Company Number: FR-ROCHE-1310835

PATIENT
  Age: 74 Year
  Sex: 0

DRUGS (6)
  1. AVASTIN [Suspect]
     Indication: PRODUCT USED FOR UNKNOWN INDICATION
     Dosage: 25 MG/ML
     Route: 065
     Dates: start: 20130518, end: 201308
  2. OXALIPLATIN [Concomitant]
     Route: 065
     Dates: start: 20130518
  3. FLUOROURACIL [Concomitant]
     Route: 065
     Dates: start: 20130518
  4. FOLINIC ACID [Concomitant]
     Route: 065
     Dates: start: 20130518
  5. LEVOTHYROX [Concomitant]
  6. NISISCO [Concomitant]

REACTIONS (2)
  - Myositis [Recovered/Resolved with Sequelae]
  - Monoparesis [Recovered/Resolved with Sequelae]
